FAERS Safety Report 4551420-6 (Version None)
Quarter: 2005Q1

REPORT INFORMATION
  Report Type: 
  Country: None (occurrence: None)
  Receive Date: 20050111
  Receipt Date: 20050111
  Transmission Date: 20050727
  Serious: Yes (Life-Threatening, Hospitalization)
  Sender: FDA-Public Use
  Company Number: None

PATIENT
  Age: 52 Year
  Sex: Male

DRUGS (1)
  1. TAXOL [Suspect]

REACTIONS (5)
  - AORTIC DISSECTION [None]
  - AORTIC RUPTURE [None]
  - DEVICE FAILURE [None]
  - HAEMATOMA [None]
  - PROCEDURAL COMPLICATION [None]
